FAERS Safety Report 11048201 (Version 1)
Quarter: 2015Q2

REPORT INFORMATION
  Report Type: Spontaneous
  Country: US (occurrence: None)
  Receive Date: 20150417
  Receipt Date: 20150417
  Transmission Date: 20150821
  Serious: No
  Sender: FDA-Public Use
  Company Number: None

PATIENT
  Age: 71 Year
  Sex: Male

DRUGS (1)
  1. ACTHAR [Suspect]
     Active Substance: CORTICOTROPIN
     Indication: POLYARTHRITIS
     Dosage: 1971- CURRENT?80 UNITS, WEEKLY, IM
     Route: 030
     Dates: start: 1971

REACTIONS (4)
  - Drug ineffective [None]
  - Product formulation issue [None]
  - Product quality issue [None]
  - Inadequate analgesia [None]

NARRATIVE: CASE EVENT DATE: 20150416
